FAERS Safety Report 7909826-0 (Version None)
Quarter: 2011Q4

REPORT INFORMATION
  Report Type: 
  Country: None (occurrence: None)
  Receive Date: 20111111
  Receipt Date: 20111109
  Transmission Date: 20120403
  Serious: Yes (Other)
  Sender: FDA-Public Use
  Company Number: DE-MERCK-1111DEU00063

PATIENT
  Age: 74 Year
  Sex: Female
  Weight: 64 kg

DRUGS (1)
  1. JANUVIA [Suspect]
     Indication: DIABETES MELLITUS
     Route: 048
     Dates: start: 20110408, end: 20110505

REACTIONS (5)
  - ABDOMINAL PAIN UPPER [None]
  - TRANSAMINASES INCREASED [None]
  - ASTHENIA [None]
  - NAUSEA [None]
  - OCULAR ICTERUS [None]
